FAERS Safety Report 19415855 (Version 1)
Quarter: 2021Q2

REPORT INFORMATION
  Report Type: Spontaneous
  Country: US (occurrence: US)
  Receive Date: 20210615
  Receipt Date: 20210615
  Transmission Date: 20210717
  Serious: No
  Sender: FDA-Public Use
  Company Number: US-ALLERGAN-2027303US

PATIENT
  Age: 22 Year
  Sex: Female

DRUGS (1)
  1. KYBELLA [Suspect]
     Active Substance: DEOXYCHOLIC ACID
     Indication: PRODUCT USED FOR UNKNOWN INDICATION
     Dosage: 2 VIALS, SINGLE
     Route: 058

REACTIONS (4)
  - Headache [Unknown]
  - Nausea [Unknown]
  - Musculoskeletal stiffness [Not Recovered/Not Resolved]
  - Facial asymmetry [Not Recovered/Not Resolved]
